FAERS Safety Report 14227662 (Version 1)
Quarter: 2017Q4

REPORT INFORMATION
  Report Type: Spontaneous
  Country: IT (occurrence: IT)
  Receive Date: 20171127
  Receipt Date: 20171127
  Transmission Date: 20180321
  Serious: Yes (Other)
  Sender: FDA-Public Use
  Company Number: IT-ELI_LILLY_AND_COMPANY-IT201711006787

PATIENT
  Age: 71 Year
  Sex: Male

DRUGS (2)
  1. GEMCITABINE HYDROCHLORIDE. [Suspect]
     Active Substance: GEMCITABINE HYDROCHLORIDE
     Indication: BLADDER CANCER
     Dosage: 1650 MG/M2, UNKNOWN
     Route: 042
     Dates: start: 20171001, end: 20171019
  2. CARBOPLATIN. [Concomitant]
     Active Substance: CARBOPLATIN
     Indication: BLADDER CANCER
     Dosage: 336 DF, UNKNOWN
     Route: 065
     Dates: start: 20171001, end: 20171001

REACTIONS (5)
  - Hyperthermia [Recovering/Resolving]
  - Asthenia [Recovering/Resolving]
  - Pancytopenia [Recovering/Resolving]
  - Chills [Recovering/Resolving]
  - Off label use [Recovered/Resolved]

NARRATIVE: CASE EVENT DATE: 20171001
